FAERS Safety Report 11730890 (Version 1)
Quarter: 2015Q4

REPORT INFORMATION
  Report Type: Spontaneous
  Country: US (occurrence: US)
  Receive Date: 20151110
  Receipt Date: 20151110
  Transmission Date: 20160304
  Serious: No
  Sender: FDA-Public Use
  Company Number: US-ELI_LILLY_AND_COMPANY-US201111005599

PATIENT
  Age: 78 Year
  Sex: Female

DRUGS (2)
  1. FORTEO [Suspect]
     Active Substance: TERIPARATIDE
     Dosage: 20 UG, QD
     Route: 065
     Dates: end: 20120110
  2. FORTEO [Suspect]
     Active Substance: TERIPARATIDE
     Indication: OSTEOPOROSIS
     Dosage: 20 UG, QD
     Route: 065
     Dates: start: 20111104

REACTIONS (14)
  - Eating disorder [Recovered/Resolved]
  - Asthenia [Recovered/Resolved]
  - Muscle spasms [Unknown]
  - Fall [Recovered/Resolved]
  - Balance disorder [Not Recovered/Not Resolved]
  - Adverse event [Recovered/Resolved]
  - Arthralgia [Not Recovered/Not Resolved]
  - Amnesia [Recovered/Resolved]
  - Muscle spasms [Unknown]
  - Dizziness [Recovering/Resolving]
  - Headache [Unknown]
  - Joint swelling [Unknown]
  - Peripheral swelling [Unknown]
  - Dysstasia [Not Recovered/Not Resolved]

NARRATIVE: CASE EVENT DATE: 20111124
